FAERS Safety Report 24078450 (Version 3)
Quarter: 2024Q3

REPORT INFORMATION
  Report Type: Spontaneous
  Country: FR (occurrence: FR)
  Receive Date: 20240711
  Receipt Date: 20240731
  Transmission Date: 20241017
  Serious: Yes (Other)
  Sender: AUROBINDO
  Company Number: FR-MYLANLABS-2024M1058613

PATIENT
  Age: 47 Year
  Sex: Male

DRUGS (2)
  1. ZOLPIDEM [Suspect]
     Active Substance: ZOLPIDEM TARTRATE
     Indication: Insomnia
     Dosage: 5 MILLIGRAM
     Route: 065
  2. ZOLPIDEM [Suspect]
     Active Substance: ZOLPIDEM TARTRATE
     Dosage: 10 MILLIGRAM
     Route: 065

REACTIONS (12)
  - Drug use disorder [Unknown]
  - Drug dependence [Unknown]
  - Weaning failure [Unknown]
  - Overdose [Unknown]
  - Drug abuse [Unknown]
  - Drug ineffective [Unknown]
  - Discomfort [Unknown]
  - Withdrawal syndrome [Unknown]
  - Insomnia [Unknown]
  - Malaise [Unknown]
  - Feeling abnormal [Unknown]
  - Off label use [Unknown]
